FAERS Safety Report 25629013 (Version 5)
Quarter: 2025Q4

REPORT INFORMATION
  Report Type: Spontaneous
  Country: US (occurrence: US)
  Receive Date: 20250731
  Receipt Date: 20251214
  Transmission Date: 20260117
  Serious: No
  Sender: SANOFI AVENTIS
  Company Number: US-SA-2025SA221144

PATIENT
  Age: 40 Year
  Sex: Female
  Weight: 130 kg

DRUGS (5)
  1. DUPIXENT [Suspect]
     Active Substance: DUPILUMAB
     Indication: Nasal polyps
     Dosage: 300 MG, QOW
     Route: 058
     Dates: start: 202506
  2. DUPIXENT [Suspect]
     Active Substance: DUPILUMAB
     Indication: Nasal congestion
  3. DUPIXENT [Suspect]
     Active Substance: DUPILUMAB
     Indication: Asthma
  4. BENADRYL [Concomitant]
     Active Substance: DIPHENHYDRAMINE HYDROCHLORIDE
     Indication: Product used for unknown indication
  5. VICKS DAYQUIL [Concomitant]
     Active Substance: DEXTROMETHORPHAN HYDROBROMIDE\GUAIFENESIN
     Dosage: UNK

REACTIONS (11)
  - Pruritus [Unknown]
  - Injection site urticaria [Unknown]
  - Fatigue [Unknown]
  - Oropharyngeal pain [Unknown]
  - Injection site swelling [Recovered/Resolved]
  - Injection site pain [Recovered/Resolved]
  - Injection site erythema [Recovered/Resolved]
  - Product use in unapproved indication [Unknown]
  - Incorrect dose administered [Unknown]
  - Lack of injection site rotation [Unknown]
  - Product preparation error [Unknown]

NARRATIVE: CASE EVENT DATE: 20250101
